FAERS Safety Report 5699509-2 (Version None)
Quarter: 2008Q2

REPORT INFORMATION
  Report Type: 
  Country: None (occurrence: None)
  Receive Date: 20080410
  Receipt Date: 20080402
  Transmission Date: 20081010
  Serious: No
  Sender: FDA-Public Use
  Company Number: US-BAYER-200818920NA

PATIENT
  Age: 50 Year
  Sex: Female
  Weight: 75 kg

DRUGS (3)
  1. YAZ [Suspect]
     Indication: VAGINAL HAEMORRHAGE
     Route: 048
     Dates: end: 20080329
  2. SYNTHROID [Concomitant]
  3. ALLEGRA [Concomitant]

REACTIONS (4)
  - ANXIETY [None]
  - HEADACHE [None]
  - PANIC ATTACK [None]
  - PHOTOPSIA [None]
